FAERS Safety Report 21617030 (Version 5)
Quarter: 2023Q1

REPORT INFORMATION
  Report Type: Spontaneous
  Country: US (occurrence: US)
  Receive Date: 20221118
  Receipt Date: 20230215
  Transmission Date: 20230418
  Serious: Yes (Other)
  Sender: FDA-Public Use
  Company Number: US-Calliditas-2022CAL00523

PATIENT
  Age: 65 Year
  Sex: Male

DRUGS (1)
  1. TARPEYO [Suspect]
     Active Substance: BUDESONIDE
     Indication: IgA nephropathy
     Dosage: 8MG (4MG CAPSULES) ONCE DAILY
     Route: 048
     Dates: start: 20220715, end: 20230127

REACTIONS (8)
  - End stage renal disease [Unknown]
  - Prescribed underdose [Recovered/Resolved]
  - Hypertension [Not Recovered/Not Resolved]
  - Oedema peripheral [Unknown]
  - Swelling [Unknown]
  - Weight increased [Unknown]
  - Blood creatinine increased [Unknown]
  - Proteinuria [Unknown]
